FAERS Safety Report 13707577 (Version 2)
Quarter: 2017Q3

REPORT INFORMATION
  Report Type: Report from Study
  Country: None (occurrence: GB)
  Receive Date: 20170630
  Receipt Date: 20170711
  Transmission Date: 20171127
  Serious: Yes (Other)
  Sender: FDA-Public Use
  Company Number: GB-ABBVIE-17P-167-2026115-00

PATIENT
  Sex: Female

DRUGS (1)
  1. DUODOPA [Suspect]
     Active Substance: CARBIDOPA\LEVODOPA
     Indication: PRODUCT USED FOR UNKNOWN INDICATION
     Dosage: 1 CASSETTE
     Route: 050

REACTIONS (8)
  - Breast cancer [Unknown]
  - Abdominal infection [Unknown]
  - Abdominal pain [Unknown]
  - Stoma site discharge [Unknown]
  - Appetite disorder [Unknown]
  - Pain [Unknown]
  - Stoma site discomfort [Unknown]
  - Feeling of body temperature change [Unknown]
